FAERS Safety Report 11163514 (Version 1)
Quarter: 2015Q2

REPORT INFORMATION
  Report Type: Spontaneous
  Country: US (occurrence: US)
  Receive Date: 20150604
  Receipt Date: 20150604
  Transmission Date: 20150821
  Serious: Yes (Other)
  Sender: FDA-Public Use
  Company Number: US-SA-2015SA017607

PATIENT
  Age: 78 Year
  Sex: Male

DRUGS (7)
  1. SOLOSTAR [Concomitant]
     Active Substance: DEVICE
     Indication: DIABETES MELLITUS
     Dates: start: 2014
  2. SOLOSTAR [Concomitant]
     Active Substance: DEVICE
     Indication: DIABETES MELLITUS
  3. ORAL ANTIDIABETICS [Concomitant]
     Active Substance: UNSPECIFIED INGREDIENT
     Route: 048
  4. LANTUS SOLOSTAR [Suspect]
     Active Substance: INSULIN GLARGINE
     Indication: TYPE 2 DIABETES MELLITUS
     Dosage: DOSE: 8 UNITS QAM, 4 UNITS AT NOON, AND 18 UNITS AT?NIGHT TO EQUAL 30 UNITS QD
     Route: 065
  5. LANTUS SOLOSTAR [Suspect]
     Active Substance: INSULIN GLARGINE
     Indication: TYPE 2 DIABETES MELLITUS
     Dosage: 4 UNITS HS, 8 UNITS QAM AND 8 UNITS BEFORE DINNER
     Route: 065
  6. JANUVIA [Concomitant]
     Active Substance: SITAGLIPTIN PHOSPHATE
  7. LANTUS SOLOSTAR [Suspect]
     Active Substance: INSULIN GLARGINE
     Indication: TYPE 2 DIABETES MELLITUS
     Dosage: DOSE:15 UNIT(S)
     Route: 065
     Dates: start: 2014

REACTIONS (6)
  - Blood glucose decreased [Unknown]
  - Drug administration error [Unknown]
  - Chills [Unknown]
  - Night sweats [Unknown]
  - Shock hypoglycaemic [Unknown]
  - Blood glucose fluctuation [Not Recovered/Not Resolved]
